FAERS Safety Report 23487416 (Version 1)
Quarter: 2024Q1

REPORT INFORMATION
  Report Type: Spontaneous
  Country: US (occurrence: US)
  Receive Date: 20240206
  Receipt Date: 20240206
  Transmission Date: 20240410
  Serious: Yes (Hospitalization, Other)
  Sender: FDA-Public Use
  Company Number: US-SA-SAC20240206000092

PATIENT
  Age: 7 Year
  Sex: Female

DRUGS (3)
  1. DUPIXENT [Suspect]
     Active Substance: DUPILUMAB
     Indication: Eczema
     Dosage: 600 MG, 1X
     Route: 058
     Dates: start: 202306, end: 202306
  2. DUPIXENT [Suspect]
     Active Substance: DUPILUMAB
     Dosage: 300MG Q4W
     Route: 058
     Dates: start: 2023, end: 202309
  3. DUPIXENT [Suspect]
     Active Substance: DUPILUMAB
     Dosage: 300MG Q4W
     Route: 058
     Dates: start: 202310

REACTIONS (6)
  - Salmonellosis [Unknown]
  - Diarrhoea [Unknown]
  - Pyrexia [Unknown]
  - Eczema [Unknown]
  - Pruritus [Unknown]
  - Scratch [Unknown]

NARRATIVE: CASE EVENT DATE: 20230901
